FAERS Safety Report 4721074-4 (Version None)
Quarter: 2005Q3

REPORT INFORMATION
  Report Type: 
  Country: None (occurrence: None)
  Receive Date: 20050719
  Receipt Date: 20040903
  Transmission Date: 20060218
  Serious: Yes (Other)
  Sender: FDA-Public Use
  Company Number: 2004202386US

PATIENT
  Age: 70 Year
  Sex: Male
  Weight: 83.9 kg

DRUGS (7)
  1. CELEBREX [Suspect]
     Indication: ARTHRITIS
     Dosage: 200 MG, BID;  200 MG, BID, ORAL
     Route: 048
     Dates: start: 20031001, end: 20040101
  2. CELEBREX [Suspect]
     Indication: ARTHRITIS
     Dosage: 200 MG, BID;  200 MG, BID, ORAL
     Route: 048
     Dates: start: 20040101, end: 20040101
  3. BACTRIM [Suspect]
     Indication: PROSTATITIS
     Dosage: ORAL
     Route: 048
     Dates: start: 20040113, end: 20040101
  4. CARDURA [Concomitant]
  5. ATACAND [Concomitant]
  6. NORVASC [Concomitant]
  7. NEURONTIN [Concomitant]

REACTIONS (1)
  - RENAL IMPAIRMENT [None]
